FAERS Safety Report 6022273-4 (Version None)
Quarter: 2008Q4

REPORT INFORMATION
  Report Type: 
  Country: None (occurrence: None)
  Receive Date: 20081230
  Receipt Date: 20081219
  Transmission Date: 20090506
  Serious: Yes (Other)
  Sender: FDA-Public Use
  Company Number: US-JNJFOC-20081102051

PATIENT
  Age: 4 Year
  Sex: Male
  Weight: 22.68 kg

DRUGS (1)
  1. CHILDREN'S TYLENOL PLUS MULTI-SYMPTOM COLD GRAPE [Suspect]
     Indication: NASOPHARYNGITIS
     Route: 048

REACTIONS (4)
  - HEART RATE INCREASED [None]
  - HYPOTONIA [None]
  - INCOHERENT [None]
  - MYDRIASIS [None]
